FAERS Safety Report 10905981 (Version 1)
Quarter: 2015Q1

REPORT INFORMATION
  Report Type: Spontaneous
  Country: US (occurrence: US)
  Receive Date: 20150311
  Receipt Date: 20150311
  Transmission Date: 20150721
  Serious: No
  Sender: FDA-Public Use
  Company Number: US-009507513-1503USA001800

PATIENT
  Age: 44 Year
  Sex: Female

DRUGS (7)
  1. OMEPRAZOLE. [Concomitant]
     Active Substance: OMEPRAZOLE
  2. METHYLPREDNISOLONE SODIUM SUCCINATE. [Concomitant]
     Active Substance: METHYLPREDNISOLONE SODIUM SUCCINATE
  3. RIVAROXABAN [Concomitant]
     Active Substance: RIVAROXABAN
  4. ACETAMINOPHEN. [Concomitant]
     Active Substance: ACETAMINOPHEN
  5. KEYTRUDA [Suspect]
     Active Substance: PEMBROLIZUMAB
     Indication: METASTATIC MALIGNANT MELANOMA
     Dosage: 100 MG, EVERY 3 WEEKS
     Route: 042
     Dates: start: 20141119
  6. EMLA [Concomitant]
     Active Substance: LIDOCAINE\PRILOCAINE
  7. MORPHINE [Concomitant]
     Active Substance: MORPHINE

REACTIONS (1)
  - Hair colour changes [Not Recovered/Not Resolved]

NARRATIVE: CASE EVENT DATE: 201502
